FAERS Safety Report 19396064 (Version 1)
Quarter: 2021Q2

REPORT INFORMATION
  Report Type: Other
  Country: AT (occurrence: AT)
  Receive Date: 20210609
  Receipt Date: 20210609
  Transmission Date: 20210717
  Serious: Yes (Death, Other)
  Sender: FDA-Public Use
  Company Number: AT-ROCHE-2842405

PATIENT

DRUGS (5)
  1. PEMBROLIZUMAB. [Suspect]
     Active Substance: PEMBROLIZUMAB
     Indication: NEOPLASM MALIGNANT
     Route: 065
  2. IPILIMUMAB [Suspect]
     Active Substance: IPILIMUMAB
     Indication: NEOPLASM MALIGNANT
     Route: 065
  3. ATEZOLIZUMAB. [Suspect]
     Active Substance: ATEZOLIZUMAB
     Indication: NEOPLASM MALIGNANT
     Route: 065
  4. NIVOLUMAB [Suspect]
     Active Substance: NIVOLUMAB
     Indication: NEOPLASM MALIGNANT
     Route: 065
  5. AVELUMAB [Suspect]
     Active Substance: AVELUMAB
     Indication: NEOPLASM MALIGNANT
     Route: 065

REACTIONS (9)
  - Ischaemic stroke [Fatal]
  - Acute myocardial infarction [Unknown]
  - Deep vein thrombosis [Unknown]
  - Peripheral artery occlusion [Unknown]
  - Visceral venous thrombosis [Unknown]
  - Acute coronary syndrome [Unknown]
  - Pulmonary embolism [Fatal]
  - Device related thrombosis [Unknown]
  - Vascular occlusion [Unknown]
